FAERS Safety Report 4501396-2 (Version None)
Quarter: 2004Q4

REPORT INFORMATION
  Report Type: 
  Country: None (occurrence: None)
  Receive Date: 20040928
  Receipt Date: 20040820
  Transmission Date: 20050328
  Serious: No
  Sender: FDA-Public Use
  Company Number: 04P-163-0271171-00

PATIENT
  Age: 47 Year
  Sex: Female

DRUGS (4)
  1. HUMIRA [Suspect]
     Indication: RHEUMATOID ARTHRITIS
     Dosage: 40 MG 1 IN 2 WK SUBCUTANEOUS
     Route: 058
     Dates: start: 20040819
  2. PREDNISONE [Concomitant]
  3. METHOTREXATE [Concomitant]
  4. ROFECOXIB [Concomitant]

REACTIONS (3)
  - INJECTION SITE BURNING [None]
  - PARAESTHESIA [None]
  - PERIPHERAL COLDNESS [None]
